FAERS Safety Report 25806067 (Version 1)
Quarter: 2025Q3

REPORT INFORMATION
  Report Type: Spontaneous
  Country: CA (occurrence: CA)
  Receive Date: 20250916
  Receipt Date: 20250916
  Transmission Date: 20251021
  Serious: Yes (Death)
  Sender: AUROBINDO
  Company Number: CA-AUROBINDO-AUR-APL-2025-045803

PATIENT
  Age: 69 Year
  Sex: Male

DRUGS (6)
  1. TOFACITINIB CITRATE [Suspect]
     Active Substance: TOFACITINIB CITRATE
     Indication: Dermatomyositis
     Dosage: 5 MILLIGRAM, TWO TIMES A DAY
     Route: 065
  2. TOFACITINIB CITRATE [Suspect]
     Active Substance: TOFACITINIB CITRATE
     Indication: Interstitial lung disease
  3. RITUXIMAB [Suspect]
     Active Substance: RITUXIMAB
     Indication: Dermatomyositis
     Route: 065
  4. RITUXIMAB [Suspect]
     Active Substance: RITUXIMAB
     Indication: Interstitial lung disease
  5. IMMUNE GLOBULIN NOS [Suspect]
     Active Substance: IMMUNE GLOBULIN NOS
     Indication: Dermatomyositis
     Route: 065
  6. IMMUNE GLOBULIN NOS [Suspect]
     Active Substance: IMMUNE GLOBULIN NOS
     Indication: Interstitial lung disease
     Route: 065

REACTIONS (1)
  - Drug ineffective [Fatal]
